FAERS Safety Report 20654531 (Version 1)
Quarter: 2022Q1

REPORT INFORMATION
  Report Type: Spontaneous
  Country: US (occurrence: US)
  Receive Date: 20220330
  Receipt Date: 20220330
  Transmission Date: 20220423
  Serious: Yes (Other)
  Sender: FDA-Public Use
  Company Number: US-XERIS PHARMACEUTICALS-2022XER00136

PATIENT
  Sex: Female

DRUGS (1)
  1. KEVEYIS [Suspect]
     Active Substance: DICHLORPHENAMIDE
     Dosage: UNK

REACTIONS (3)
  - Chest pain [Unknown]
  - Angina pectoris [Unknown]
  - Myocardial infarction [Unknown]
